FAERS Safety Report 4816278-6 (Version None)
Quarter: 2005Q4

REPORT INFORMATION
  Report Type: 
  Country: None (occurrence: None)
  Receive Date: 20051028
  Receipt Date: 20051019
  Transmission Date: 20060501
  Serious: Yes (Other)
  Sender: FDA-Public Use
  Company Number: 8477

PATIENT
  Age: 24 Year
  Sex: Female
  Weight: 49.8957 kg

DRUGS (3)
  1. SEPTOCAINE [Suspect]
     Indication: DENTAL OPERATION
     Dosage: 1.6 ML INJECTED
  2. SEPTOCAINE [Suspect]
     Indication: LOCAL ANAESTHESIA
     Dosage: 1.6 ML INJECTED
  3. HURRICAINE [Suspect]
     Indication: LOCAL ANAESTHESIA
     Dosage: TOPICAL
     Route: 061

REACTIONS (1)
  - PARAESTHESIA ORAL [None]
